FAERS Safety Report 24201856 (Version 2)
Quarter: 2024Q3

REPORT INFORMATION
  Report Type: Spontaneous
  Country: KR (occurrence: KR)
  Receive Date: 20240812
  Receipt Date: 20240815
  Transmission Date: 20241017
  Serious: Yes (Other)
  Sender: MERCK
  Company Number: KR-009507513-2408KOR001501

PATIENT
  Age: 71 Year
  Sex: Female

DRUGS (1)
  1. KEYTRUDA [Suspect]
     Active Substance: PEMBROLIZUMAB
     Indication: Urethral cancer
     Dosage: 4255.319 MILLIGRAM, Q3W
     Route: 042
     Dates: start: 20220408, end: 20230407

REACTIONS (2)
  - Hypothyroidism [Recovering/Resolving]
  - Neuropathy peripheral [Recovering/Resolving]

NARRATIVE: CASE EVENT DATE: 20220101
